FAERS Safety Report 8439114-8 (Version None)
Quarter: 2012Q2

REPORT INFORMATION
  Report Type: 
  Country: None (occurrence: None)
  Receive Date: 20120615
  Receipt Date: 20120606
  Transmission Date: 20120825
  Serious: Yes (Life-Threatening, Hospitalization)
  Sender: FDA-Public Use
  Company Number: FR-BRISTOL-MYERS SQUIBB COMPANY-16669962

PATIENT
  Age: 5 Decade
  Sex: Male

DRUGS (2)
  1. RITONAVIR [Suspect]
  2. REYATAZ [Suspect]

REACTIONS (2)
  - RENAL FAILURE CHRONIC [None]
  - COMA [None]
